FAERS Safety Report 15194603 (Version 9)
Quarter: 2024Q3

REPORT INFORMATION
  Report Type: Report from Study
  Country: DE (occurrence: DE)
  Receive Date: 20180725
  Receipt Date: 20240801
  Transmission Date: 20241017
  Serious: No
  Sender: ROCHE
  Company Number: DE-ROCHE-2141668

PATIENT
  Age: 35 Year
  Sex: Female

DRUGS (15)
  1. OCREVUS [Suspect]
     Active Substance: OCRELIZUMAB
     Indication: Relapsing-remitting multiple sclerosis
     Dosage: 204 DAYS 600 MG
     Route: 042
     Dates: start: 20180607
  2. OCREVUS [Suspect]
     Active Substance: OCRELIZUMAB
     Route: 042
     Dates: start: 20181206
  3. OCREVUS [Suspect]
     Active Substance: OCRELIZUMAB
     Route: 042
     Dates: start: 20191205
  4. OCREVUS [Suspect]
     Active Substance: OCRELIZUMAB
     Route: 042
     Dates: start: 20210606
  5. OCREVUS [Suspect]
     Active Substance: OCRELIZUMAB
     Dosage: 7TH MAINTAINANCE DOSE
     Route: 042
     Dates: start: 20211213
  6. OCREVUS [Suspect]
     Active Substance: OCRELIZUMAB
     Route: 042
     Dates: start: 20220530
  7. OCREVUS [Suspect]
     Active Substance: OCRELIZUMAB
     Route: 042
     Dates: start: 20190606
  8. OCREVUS [Suspect]
     Active Substance: OCRELIZUMAB
     Route: 042
     Dates: start: 20180607
  9. COMIRNATY (TOZINAMERAN) [Suspect]
     Active Substance: TOZINAMERAN
     Indication: COVID-19 prophylaxis
     Dosage: FIRST DOSE
     Route: 065
     Dates: end: 20210908
  10. COMIRNATY (TOZINAMERAN) [Suspect]
     Active Substance: TOZINAMERAN
     Dosage: SECOND DOSE
     Route: 065
     Dates: start: 20210929, end: 20210929
  11. COMIRNATY (TOZINAMERAN) [Suspect]
     Active Substance: TOZINAMERAN
     Dosage: THIRD DOSE
     Route: 065
     Dates: start: 20211028
  12. CORTISONE [Suspect]
     Active Substance: CORTISONE
     Indication: Product used for unknown indication
     Route: 065
  13. LEVOTHYROXINE SODIUM [Concomitant]
     Active Substance: LEVOTHYROXINE SODIUM
  14. RAMIPRIL [Concomitant]
     Active Substance: RAMIPRIL
  15. METOPROLOL [Concomitant]
     Active Substance: METOPROLOL

REACTIONS (13)
  - Fatigue [Recovered/Resolved]
  - Nasopharyngitis [Unknown]
  - Pain in extremity [Unknown]
  - Allodynia [Unknown]
  - Body temperature increased [Recovered/Resolved]
  - SARS-CoV-2 antibody test negative [Not Recovered/Not Resolved]
  - Malaise [Recovered/Resolved]
  - Apathy [Recovered/Resolved]
  - Fatigue [Recovered/Resolved]
  - COVID-19 [Recovered/Resolved]
  - Bronchitis [Recovered/Resolved]
  - Laryngitis [Recovered/Resolved]
  - Blood pressure increased [Recovered/Resolved]

NARRATIVE: CASE EVENT DATE: 20180621
